FAERS Safety Report 20571738 (Version 2)
Quarter: 2022Q2

REPORT INFORMATION
  Report Type: Spontaneous
  Country: JP (occurrence: JP)
  Receive Date: 20220309
  Receipt Date: 20220420
  Transmission Date: 20220721
  Serious: Yes (Hospitalization, Other)
  Sender: FDA-Public Use
  Company Number: JP-BAYER-2022A031928

PATIENT
  Age: 49 Year
  Sex: Male

DRUGS (1)
  1. KOVALTRY [Suspect]
     Active Substance: ANTIHEMOPHILIC FACTOR, HUMAN RECOMBINANT
     Route: 042

REACTIONS (3)
  - Gastrointestinal haemorrhage [None]
  - Gastrointestinal obstruction [None]
  - Treatment noncompliance [None]

NARRATIVE: CASE EVENT DATE: 20220203
